FAERS Safety Report 10996536 (Version 1)
Quarter: 2015Q1

REPORT INFORMATION
  Report Type: Spontaneous
  Country: US (occurrence: None)
  Receive Date: 20150331
  Receipt Date: 20150331
  Transmission Date: 20150721
  Serious: Yes (Disabling)
  Sender: FDA-Public Use
  Company Number: PHEH2014US015218

PATIENT
  Age: 66 Year
  Sex: Male
  Weight: 77.2 kg

DRUGS (15)
  1. GINKO BILBOA [Concomitant]
  2. METFORMIN [Concomitant]
     Active Substance: METFORMIN HYDROCHLORIDE
  3. SEROQUEL [Concomitant]
     Active Substance: QUETIAPINE FUMARATE
  4. FLAXSEED OIL (LINUM USITATISSIMUM SEED OIL) [Concomitant]
  5. VITAMIN B [Concomitant]
     Active Substance: VITAMIN B
  6. VITAMIN D (ERGOCALCIFEROL) [Concomitant]
     Active Substance: ERGOCALCIFEROL
  7. VITAMIN E [Concomitant]
     Active Substance: .ALPHA.-TOCOPHEROL
  8. FISH OIL [Concomitant]
     Active Substance: FISH OIL
  9. GARLIC (ALLIUM SATIVUM) OIL [Concomitant]
  10. RAMIPRIL. [Concomitant]
     Active Substance: RAMIPRIL
  11. EXELON PATCH [Suspect]
     Active Substance: RIVASTIGMINE
     Indication: DEMENTIA
     Route: 062
     Dates: start: 20140715, end: 20140721
  12. PROBIOTIC (BIFIDOBACTERIUM INFANTS, LACTOBACILLUS ACIDOPHILUS) [Concomitant]
  13. GLYBURIDE (GLIBENCLAMIDE) [Concomitant]
     Active Substance: GLYBURIDE
  14. ASPIRIN. [Concomitant]
     Active Substance: ASPIRIN
  15. VITAMIN C [Concomitant]
     Active Substance: ASCORBIC ACID

REACTIONS (1)
  - Hallucination [None]

NARRATIVE: CASE EVENT DATE: 20140716
